FAERS Safety Report 12346513 (Version 1)
Quarter: 2016Q2

REPORT INFORMATION
  Report Type: Spontaneous
  Country: US (occurrence: None)
  Receive Date: 20160506
  Receipt Date: 20160506
  Transmission Date: 20160815
  Serious: Yes (Life-Threatening, Hospitalization, Disabling)
  Sender: FDA-Public Use
  Company Number: None

PATIENT
  Age: 29 Year
  Sex: Male
  Weight: 86.18 kg

DRUGS (2)
  1. CITALOPRAM, 20 MG TORRENT PH [Suspect]
     Active Substance: CITALOPRAM HYDROBROMIDE
     Route: 048
  2. ESZOPICLONE 3, 3 MG DR. REDDYS [Suspect]
     Active Substance: ESZOPICLONE
     Route: 048

REACTIONS (5)
  - Thinking abnormal [None]
  - Depression [None]
  - Insomnia [None]
  - Schizoaffective disorder [None]
  - Drug ineffective [None]

NARRATIVE: CASE EVENT DATE: 20160113
